FAERS Safety Report 8371752-3 (Version None)
Quarter: 2012Q2

REPORT INFORMATION
  Report Type: 
  Country: None (occurrence: None)
  Receive Date: 20120518
  Receipt Date: 20120514
  Transmission Date: 20120825
  Serious: Yes (Other)
  Sender: FDA-Public Use
  Company Number: US-ROCHE-1069511

PATIENT
  Sex: Female
  Weight: 63.106 kg

DRUGS (3)
  1. KLONOPIN [Suspect]
     Indication: BIPOLAR DISORDER
  2. ZOLOFT [Suspect]
     Indication: BIPOLAR DISORDER
  3. ZOLOFT [Suspect]

REACTIONS (1)
  - MANIA [None]
